FAERS Safety Report 17150815 (Version 1)
Quarter: 2019Q4

REPORT INFORMATION
  Report Type: Spontaneous
  Country: US (occurrence: US)
  Receive Date: 20191212
  Receipt Date: 20191212
  Transmission Date: 20200122
  Serious: Yes (Other)
  Sender: FDA-Public Use
  Company Number: None

PATIENT
  Age: 73 Year
  Sex: Female

DRUGS (22)
  1. ENBREL [Suspect]
     Active Substance: ETANERCEPT
     Indication: PSORIASIS
     Dosage: ?          OTHER FREQUENCY:ONCE A WEEK;?
     Route: 058
     Dates: start: 20171101
  2. CEPHALEXIN CAP 500MG [Concomitant]
     Dates: start: 20190313
  3. HYDROCO/APAP TAB 7.5-325 [Concomitant]
     Dates: start: 20190313
  4. HYDROCO/APAP TAB 5-32 MG [Concomitant]
     Dates: start: 20191120
  5. PROMETHAZINE TAB 12.5 MG [Concomitant]
     Dates: start: 20191120
  6. METHOCARBAM TAB 500 MG [Concomitant]
     Dates: start: 20191126
  7. METHOTREXATE TAB 2.5 MG [Concomitant]
     Dates: start: 20190109
  8. DOXYCYCL HYC CAP 100 MG [Concomitant]
     Dates: start: 20191126
  9. ATORVASTATIN TAB 20MG [Concomitant]
     Dates: start: 20190722
  10. PREGABALIN CAP 50MG [Concomitant]
     Dates: start: 20190927
  11. XARELTO TAB 20MG [Concomitant]
     Dates: start: 20190528
  12. ESOMEPRA MAG CAP 40MG DR [Concomitant]
     Active Substance: ESOMEPRAZOLE MAGNESIUM
     Dates: start: 20190604
  13. FOLIC ACID TAB 1000 MCG [Concomitant]
     Dates: start: 20190701
  14. AMLODIPINE TAB 5 MG [Concomitant]
     Dates: start: 20190722
  15. FLUTICASONE SPR 50MCG [Concomitant]
     Active Substance: FLUTICASONE
     Dates: start: 20191028
  16. FLECAINIDE TAB 100 MG [Concomitant]
     Dates: start: 20190409
  17. FLUTICASONE SPR MGMCG [Concomitant]
     Dates: start: 20190117
  18. METOPROL SUC TAB 50MG ER [Concomitant]
     Dates: start: 20190925
  19. ENOXAPARIN INJ 40/0.4ML [Concomitant]
     Dates: start: 20190225
  20. POT CHLORIDE TAB 10MEQ ER [Concomitant]
     Dates: start: 20190722
  21. LISINOPRIL TAB 20MG [Concomitant]
     Active Substance: LISINOPRIL
     Dates: start: 20190909
  22. MONTELUKAST [Concomitant]
     Active Substance: MONTELUKAST SODIUM
     Dates: start: 20190916

REACTIONS (1)
  - Intentional dose omission [None]

NARRATIVE: CASE EVENT DATE: 20191115
